FAERS Safety Report 8381989-5 (Version None)
Quarter: 2012Q2

REPORT INFORMATION
  Report Type: 
  Country: None (occurrence: None)
  Receive Date: 20120524
  Receipt Date: 20100210
  Transmission Date: 20120825
  Serious: Yes (Hospitalization)
  Sender: FDA-Public Use
  Company Number: KR-JNJFOC-20100111859

PATIENT
  Sex: Female
  Weight: 60 kg

DRUGS (24)
  1. ULTRACET [Concomitant]
     Indication: PAIN
     Route: 048
     Dates: start: 20080414
  2. METHOTREXATE [Suspect]
     Route: 048
     Dates: start: 20080122, end: 20080311
  3. METHOTREXATE [Suspect]
     Route: 048
     Dates: start: 20061212, end: 20061212
  4. ADCAL [Concomitant]
     Indication: OSTEOPOROSIS
     Route: 048
     Dates: start: 20061030
  5. GOLIMUMAB [Suspect]
     Route: 058
     Dates: start: 20061030
  6. METHOTREXATE [Suspect]
     Route: 048
     Dates: start: 20061031, end: 20061121
  7. METHOTREXATE [Suspect]
     Route: 048
     Dates: start: 20061219, end: 20061219
  8. METHOTREXATE [Suspect]
     Route: 048
     Dates: start: 20071204, end: 20080115
  9. TANATRIL [Concomitant]
     Indication: HYPERTENSION
     Route: 048
     Dates: start: 20070315
  10. GOLIMUMAB [Suspect]
     Indication: RHEUMATOID ARTHRITIS
     Route: 058
     Dates: start: 20100118
  11. DICHLOZID [Concomitant]
     Indication: HYPERTENSION
     Route: 048
     Dates: start: 20071101
  12. METHOTREXATE [Suspect]
     Indication: RHEUMATOID ARTHRITIS
     Route: 048
     Dates: start: 20061226, end: 20070315
  13. METHOTREXATE [Suspect]
     Route: 048
     Dates: start: 20080318, end: 20080318
  14. METHOTREXATE [Suspect]
     Route: 048
     Dates: start: 20061128, end: 20061205
  15. ALL OTHER PRODUCTS [Concomitant]
     Indication: GASTROINTESTINAL DISORDER THERAPY
     Route: 048
     Dates: start: 20080930
  16. ANYDIPINE [Concomitant]
     Indication: HYPERTENSION
     Route: 048
     Dates: start: 20090605
  17. METHOTREXATE [Suspect]
     Route: 048
     Dates: start: 20080520, end: 20080701
  18. METHOTREXATE [Suspect]
     Route: 048
     Dates: start: 20070522, end: 20071120
  19. METHOTREXATE [Suspect]
     Route: 048
     Dates: start: 20071127, end: 20071127
  20. METHYLPREDNISOLONE [Concomitant]
     Indication: RHEUMATOID ARTHRITIS
     Route: 048
     Dates: start: 20060913
  21. EUPATILIN [Concomitant]
     Indication: GASTROINTESTINAL DISORDER THERAPY
     Route: 048
     Dates: start: 20061127
  22. FOLIC ACID [Concomitant]
     Route: 048
     Dates: start: 20061227
  23. METHOTREXATE [Concomitant]
     Route: 048
     Dates: start: 20080708
  24. DICLOFLEX PLASTER [Concomitant]
     Indication: PAIN
     Route: 061
     Dates: start: 20080930

REACTIONS (1)
  - PYELONEPHRITIS ACUTE [None]
